FAERS Safety Report 6093054-0 (Version None)
Quarter: 2009Q1

REPORT INFORMATION
  Report Type: 
  Country: None (occurrence: None)
  Receive Date: 20090224
  Receipt Date: 20090209
  Transmission Date: 20090719
  Serious: Yes (Other)
  Sender: FDA-Public Use
  Company Number: 177562

PATIENT
  Age: 63 Year
  Sex: Female
  Weight: 65 kg

DRUGS (2)
  1. FLUDARABIN HOSPIRA (FLUDARABINE) [Suspect]
     Indication: CHEMOTHERAPY
     Dosage: 50 MG, UNKNOWN, INTRAVENOUS
     Route: 042
     Dates: start: 20090114, end: 20090118
  2. ACYCLOVIR [Concomitant]

REACTIONS (1)
  - ASPARTATE AMINOTRANSFERASE INCREASED [None]
